FAERS Safety Report 6436722-0 (Version None)
Quarter: 2009Q4

REPORT INFORMATION
  Report Type: 
  Country: None (occurrence: None)
  Receive Date: 20091110
  Receipt Date: 20080418
  Transmission Date: 20100525
  Serious: No
  Sender: FDA-Public Use
  Company Number: AEUSA200800101

PATIENT
  Age: 81 Year
  Sex: Female
  Weight: 65.7716 kg

DRUGS (9)
  1. GAMUNEX [Suspect]
     Indication: POLYNEUROPATHY IDIOPATHIC PROGRESSIVE
     Dosage: TOTAL; IV
     Route: 042
     Dates: start: 20060101
  2. BENADRYL /00000402/ (CON.) [Concomitant]
  3. ACETAMINOPHEN (CON.) [Concomitant]
  4. ADVIL /00109201/ (CON.) [Concomitant]
  5. DIOVAN /01319601/ (CON.) [Concomitant]
  6. ACTONEL (CON.) [Concomitant]
  7. TOPROL XL (CON.) [Concomitant]
  8. INEXIUM /01479302/ (CON.) [Concomitant]
  9. AMITRIPTYLINE (CON.) [Concomitant]

REACTIONS (2)
  - INFUSION RELATED REACTION [None]
  - PRURITUS [None]
